FAERS Safety Report 6852518-X (Version None)
Quarter: 2010Q3

REPORT INFORMATION
  Report Type: 
  Country: None (occurrence: None)
  Receive Date: 20100717
  Receipt Date: 20071116
  Transmission Date: 20110219
  Serious: No
  Sender: FDA-Public Use
  Company Number: US-PFIZER INC-2007099218

PATIENT
  Sex: Female
  Weight: 54.5 kg

DRUGS (5)
  1. CHANTIX [Suspect]
     Indication: SMOKING CESSATION THERAPY
     Dates: start: 20070801
  2. VITAMINS [Concomitant]
  3. LEVOTHYROXINE SODIUM [Concomitant]
     Indication: HYPOTHYROIDISM
  4. DUONEB [Concomitant]
  5. PROCATEROL HCL [Concomitant]

REACTIONS (2)
  - NAUSEA [None]
  - VOMITING [None]
